FAERS Safety Report 17952970 (Version 2)
Quarter: 2020Q3

REPORT INFORMATION
  Report Type: Spontaneous
  Country: US (occurrence: US)
  Receive Date: 20200627
  Receipt Date: 20200908
  Transmission Date: 20201103
  Serious: No
  Sender: FDA-Public Use
  Company Number: US-ASTRAZENECA-2020SE79681

PATIENT
  Age: 640 Month
  Sex: Female

DRUGS (2)
  1. SYMBICORT [Suspect]
     Active Substance: BUDESONIDE\FORMOTEROL FUMARATE DIHYDRATE
     Indication: ASTHMA
     Dosage: 160/4.5 MCG, TWO PUFFS TWICE DAILY
     Route: 055
     Dates: start: 202005
  2. AZELASTINE. [Concomitant]
     Active Substance: AZELASTINE HYDROCHLORIDE
     Route: 045

REACTIONS (6)
  - Fatigue [Unknown]
  - Drug delivery system issue [Unknown]
  - Wrong technique in product usage process [Unknown]
  - Intentional device misuse [Unknown]
  - Rhinitis [Unknown]
  - Dyspnoea [Unknown]

NARRATIVE: CASE EVENT DATE: 202005
